FAERS Safety Report 16320266 (Version 3)
Quarter: 2019Q3

REPORT INFORMATION
  Report Type: Spontaneous
  Country: US (occurrence: US)
  Receive Date: 20190516
  Receipt Date: 20190719
  Transmission Date: 20191004
  Serious: No
  Sender: FDA-Public Use
  Company Number: US-PFIZER INC-2019205649

PATIENT
  Age: 66 Year
  Sex: Female

DRUGS (3)
  1. INTRAROSA [Concomitant]
     Active Substance: PRASTERONE
     Dosage: UNK
     Dates: start: 201901, end: 201903
  2. EUCRISA [Suspect]
     Active Substance: CRISABOROLE
     Indication: VULVOVAGINAL DRYNESS
     Dosage: 2X/DAY, APPLY A FINGERTIP FULL TO SURFACE
     Route: 061
     Dates: start: 201901, end: 201903
  3. EUCRISA [Suspect]
     Active Substance: CRISABOROLE
     Indication: VULVOVAGINAL DISCOMFORT

REACTIONS (4)
  - Drug effective for unapproved indication [Unknown]
  - Application site paraesthesia [Recovered/Resolved]
  - Off label use [Unknown]
  - Application site discomfort [Recovered/Resolved]

NARRATIVE: CASE EVENT DATE: 201901
